FAERS Safety Report 15832500 (Version 2)
Quarter: 2019Q1

REPORT INFORMATION
  Report Type: Spontaneous
  Country: CN (occurrence: CN)
  Receive Date: 20190116
  Receipt Date: 20190125
  Transmission Date: 20190417
  Serious: Yes (Hospitalization, Other)
  Sender: FDA-Public Use
  Company Number: CN-SHIRE-CN201900703

PATIENT

DRUGS (2)
  1. HUMAN ALBUMIN [Suspect]
     Active Substance: ALBUMIN HUMAN
     Dosage: 10 G, UNK
     Route: 042
     Dates: start: 20181228
  2. HUMAN ALBUMIN [Suspect]
     Active Substance: ALBUMIN HUMAN
     Indication: SUPPLEMENTATION THERAPY
     Dosage: UNK
     Route: 042
     Dates: start: 20181208, end: 20181211

REACTIONS (7)
  - Craniocerebral injury [Unknown]
  - Tachycardia [Recovering/Resolving]
  - Injection site rash [Recovered/Resolved]
  - Coma [Unknown]
  - Road traffic accident [Unknown]
  - Chills [Recovered/Resolved]
  - Hyperpyrexia [Recovering/Resolving]

NARRATIVE: CASE EVENT DATE: 20181211
